FAERS Safety Report 5338061-8 (Version None)
Quarter: 2007Q2

REPORT INFORMATION
  Report Type: 
  Country: None (occurrence: None)
  Receive Date: 20070530
  Receipt Date: 20070522
  Transmission Date: 20071010
  Serious: Yes (Other)
  Sender: FDA-Public Use
  Company Number: PHBS2007BR08629

PATIENT
  Age: 78 Year
  Sex: Male
  Weight: 75 kg

DRUGS (12)
  1. STARFORM [Suspect]
     Indication: DIABETES MELLITUS NON-INSULIN-DEPENDENT
     Dosage: UNK, TID
     Route: 048
     Dates: start: 20060101
  2. CRESTOR [Concomitant]
     Indication: CARDIAC DISORDER
     Dosage: 1 DF, QD
     Route: 048
     Dates: start: 20050101
  3. PLASIX [Concomitant]
     Indication: CARDIAC DISORDER
     Dosage: UNK, QD
     Dates: start: 20060101
  4. DIAMICRON [Concomitant]
     Indication: DIABETES MELLITUS
     Dosage: 1 DF, QD
     Route: 048
     Dates: start: 19950101
  5. MONOCORDIL [Concomitant]
     Indication: CARDIAC DISORDER
     Dosage: 1 DF, BID
     Route: 048
     Dates: start: 20050101
  6. VASTAREL [Concomitant]
     Indication: CARDIAC DISORDER
     Dosage: 1 DF, TID
     Route: 048
     Dates: start: 20050101
  7. DIOVAN [Concomitant]
     Indication: HYPERTENSION
     Dosage: 320MG, QD
     Route: 048
     Dates: start: 20050101
  8. CILOSTAZOL [Concomitant]
     Indication: POOR PERIPHERAL CIRCULATION
     Dosage: 50 MG, QD
     Route: 048
     Dates: start: 20050101
  9. ATENSINA [Concomitant]
     Indication: HYPERTENSION
     Dosage: UNK, TID
     Route: 048
     Dates: start: 20060101
  10. MANIDIPINE HYDROCHLORIDE [Concomitant]
     Indication: HYPERTENSION
     Dosage: 1 DF, QD
     Route: 048
     Dates: start: 20060101
  11. SOMALGIN [Concomitant]
     Dosage: UNK, BID
     Route: 048
     Dates: start: 20060101
  12. LEXOTAN [Concomitant]
     Dosage: UNK, BID
     Route: 048

REACTIONS (3)
  - CATARACT OPERATION [None]
  - DIARRHOEA [None]
  - FLATULENCE [None]
